FAERS Safety Report 24334431 (Version 4)
Quarter: 2024Q4

REPORT INFORMATION
  Report Type: Spontaneous
  Country: US (occurrence: US)
  Receive Date: 20240918
  Receipt Date: 20241206
  Transmission Date: 20250114
  Serious: Yes (Life-Threatening, Hospitalization, Other)
  Sender: NOVARTIS
  Company Number: US-002147023-NVSC2024US182794

PATIENT
  Age: 27 Year
  Sex: Female
  Weight: 66.6 kg

DRUGS (4)
  1. COSENTYX [Suspect]
     Active Substance: SECUKINUMAB
     Indication: Hidradenitis
     Dosage: 300 MG, OTHER (EVERY 28 DAYS)
     Route: 030
     Dates: start: 202304, end: 20240806
  2. COSENTYX [Suspect]
     Active Substance: SECUKINUMAB
     Dosage: UNK, Q4W
     Route: 058
     Dates: start: 20230404, end: 20240806
  3. DOXYCYCLINE [Concomitant]
     Active Substance: DOXYCYCLINE
     Indication: Hidradenitis
     Dosage: 100 MG (DAILY)
     Route: 048
  4. SPIRONOLACTONE [Concomitant]
     Active Substance: SPIRONOLACTONE
     Indication: Hidradenitis
     Dosage: 100 MG (DAILY)
     Route: 048

REACTIONS (5)
  - Brain abscess [Recovered/Resolved]
  - Headache [Recovered/Resolved]
  - Visual field defect [Recovered/Resolved]
  - Photophobia [Unknown]
  - Intracranial mass [Unknown]

NARRATIVE: CASE EVENT DATE: 20240804
